FAERS Safety Report 24289012 (Version 1)
Quarter: 2024Q3

REPORT INFORMATION
  Report Type: Report from Study
  Country: US (occurrence: US)
  Receive Date: 20240906
  Receipt Date: 20240906
  Transmission Date: 20241016
  Serious: No
  Sender: ACADIA PHARMACEUTICALS
  Company Number: US-ACADIA PHARMACEUTICALS INC.-ACA-2024-PIM-004695

PATIENT
  Sex: Male

DRUGS (17)
  1. NUPLAZID [Suspect]
     Active Substance: PIMAVANSERIN TARTRATE
     Indication: Parkinson^s disease
     Dosage: 34 MILLIGRAM, QD
     Route: 048
     Dates: start: 202406
  2. NUPLAZID [Suspect]
     Active Substance: PIMAVANSERIN TARTRATE
     Indication: Parkinson^s disease psychosis
  3. SEROQUEL [Suspect]
     Active Substance: QUETIAPINE FUMARATE
  4. CARBIDOPA\LEVODOPA [Suspect]
     Active Substance: CARBIDOPA\LEVODOPA
  5. KLOR-CON [Concomitant]
     Active Substance: POTASSIUM CHLORIDE
  6. SERTRALINE [Concomitant]
     Active Substance: SERTRALINE HYDROCHLORIDE
  7. MELATONIN [Concomitant]
     Active Substance: MELATONIN
  8. LEVOTHYROXINE [Concomitant]
     Active Substance: LEVOTHYROXINE\LEVOTHYROXINE SODIUM
  9. WARFARIN [Concomitant]
     Active Substance: WARFARIN
  10. BUPROPION [Concomitant]
     Active Substance: BUPROPION
  11. PREGNENOLONE [Concomitant]
     Active Substance: PREGNENOLONE
  12. FUROSEMIDE [Concomitant]
     Active Substance: FUROSEMIDE
  13. PANTOPRAZOLE [Concomitant]
     Active Substance: PANTOPRAZOLE
  14. CARBIDOPA [Concomitant]
     Active Substance: CARBIDOPA
  15. VITAMINS [Concomitant]
     Active Substance: VITAMINS
  16. SEROQUEL [Concomitant]
     Active Substance: QUETIAPINE FUMARATE
  17. CARBIDOPA\LEVODOPA [Concomitant]
     Active Substance: CARBIDOPA\LEVODOPA

REACTIONS (3)
  - Psychotic disorder [Not Recovered/Not Resolved]
  - Somnolence [Unknown]
  - Hallucination [Not Recovered/Not Resolved]
